FAERS Safety Report 6936187-6 (Version None)
Quarter: 2010Q3

REPORT INFORMATION
  Report Type: 
  Country: None (occurrence: None)
  Receive Date: 20100823
  Receipt Date: 20100811
  Transmission Date: 20110219
  Serious: Yes (Hospitalization)
  Sender: FDA-Public Use
  Company Number: FR-PFIZER INC-2010097190

PATIENT
  Age: 67 Year
  Sex: Male

DRUGS (5)
  1. CLINDAMYCIN HCL [Suspect]
     Indication: STAPHYLOCOCCAL BACTERAEMIA
     Dosage: UNK
     Dates: start: 20100330
  2. OFLOCET [Suspect]
     Indication: STAPHYLOCOCCAL BACTERAEMIA
     Dosage: UNK
     Dates: start: 20100315, end: 20100329
  3. RIFADIN [Suspect]
     Dosage: UNK
     Dates: start: 20100315, end: 20100329
  4. ORBENIN CAP [Suspect]
     Dosage: UNK
     Dates: start: 20100310, end: 20100315
  5. GENTAMICIN [Suspect]
     Dosage: UNK
     Route: 042
     Dates: start: 20100310, end: 20100315

REACTIONS (1)
  - VITAMIN K DEFICIENCY [None]
